FAERS Safety Report 13285385 (Version 1)
Quarter: 2017Q1

REPORT INFORMATION
  Report Type: Spontaneous
  Country: FR (occurrence: FR)
  Receive Date: 20170301
  Receipt Date: 20170301
  Transmission Date: 20170428
  Serious: Yes (Hospitalization)
  Sender: FDA-Public Use
  Company Number: FR-MUNDIPHARMA DS AND PHARMACOVIGILANCE-GBR-2017-0043767

PATIENT
  Age: 65 Year
  Sex: Male

DRUGS (10)
  1. OXYNORM [Suspect]
     Active Substance: OXYCODONE HYDROCHLORIDE
     Indication: ANALGESIC THERAPY
     Dosage: DOSE WAS DECREASED TO 1MG/H
     Route: 041
     Dates: start: 20170115, end: 20170118
  2. OXYNORM [Suspect]
     Active Substance: OXYCODONE HYDROCHLORIDE
     Dosage: UNK
     Route: 041
     Dates: start: 20161122, end: 20170115
  3. RITUXIMAB [Suspect]
     Active Substance: RITUXIMAB
     Dosage: 660 MG, DAILY ON DAY 1, CYCLE 1
     Route: 065
     Dates: start: 20161122, end: 20161122
  4. RITUXIMAB [Suspect]
     Active Substance: RITUXIMAB
     Indication: ASTHENIA
     Dosage: 682.5 MG, DAILY ON DAY 1, CYCLE 3
     Route: 065
     Dates: start: 20170118, end: 20170118
  5. CYTARABINE. [Suspect]
     Active Substance: CYTARABINE
     Indication: ASTHENIA
     Dosage: 1820 MG, DAILY ON DAY 1, CYCLE 3
     Route: 065
     Dates: start: 20170118, end: 20170118
  6. CYTARABINE. [Suspect]
     Active Substance: CYTARABINE
     Dosage: 1830 MG, DAILY ON DAY 1 AND DAY 2, CYCLE 2
     Route: 065
     Dates: start: 20161227
  7. CYTARABINE. [Suspect]
     Active Substance: CYTARABINE
     Dosage: 1760 MG, DAILY ON DAY 1 AND DAY 2, CYCLE 1
     Route: 065
     Dates: start: 20161122
  8. RITUXIMAB [Suspect]
     Active Substance: RITUXIMAB
     Dosage: 686.25 MG, DAILY ON DAY 1, CYCLE 2
     Route: 065
     Dates: start: 20161227, end: 20161227
  9. CARBOPLATINE [Suspect]
     Active Substance: CARBOPLATIN
     Indication: ASTHENIA
     Dosage: 295.13 MG, DAILY ON DAY 2, CYCLE 2
     Route: 065
  10. CARBOPLATINE [Suspect]
     Active Substance: CARBOPLATIN
     Dosage: 285.6 MG, DAILY ON DAY 2, CYCLE 1
     Route: 065

REACTIONS (4)
  - Disorientation [Recovered/Resolved]
  - Aggression [Recovered/Resolved]
  - Abnormal behaviour [Recovered/Resolved]
  - Confusional state [Recovered/Resolved]

NARRATIVE: CASE EVENT DATE: 20170115
